FAERS Safety Report 23302453 (Version 1)
Quarter: 2023Q4

REPORT INFORMATION
  Report Type: Spontaneous
  Country: RO (occurrence: RO)
  Receive Date: 20231215
  Receipt Date: 20231215
  Transmission Date: 20240110
  Serious: Yes (Other)
  Sender: FDA-Public Use
  Company Number: RO-AMGEN-ROUSP2023220248

PATIENT
  Age: 49 Year
  Sex: Male
  Weight: 94 kg

DRUGS (17)
  1. VECTIBIX [Suspect]
     Active Substance: PANITUMUMAB
     Indication: Colon cancer stage IV
     Dosage: 6 MILLIGRAM/KILOGRAM (MG/KGC (450 MG DT)
     Route: 042
     Dates: start: 20220203
  2. VECTIBIX [Suspect]
     Active Substance: PANITUMUMAB
     Dosage: 6 MILLIGRAM/KILOGRAM (6 MG/KGC (450 MG DT)
     Route: 042
     Dates: start: 20230216
  3. VECTIBIX [Suspect]
     Active Substance: PANITUMUMAB
     Dosage: 6 MILLIGRAM/KILOGRAM (6 MG/KGC (450 MG DT))
     Route: 042
     Dates: start: 20230330
  4. VECTIBIX [Suspect]
     Active Substance: PANITUMUMAB
     Dosage: 6 MILLIGRAM/KILOGRAM (6 MG/KGC (450 MG DT))
     Route: 042
     Dates: start: 202303, end: 202308
  5. VECTIBIX [Suspect]
     Active Substance: PANITUMUMAB
     Dosage: 6 MILLIGRAM/KILOGRAM 96 MG/KGC (450 MG DT))
     Route: 042
     Dates: start: 202308, end: 202310
  6. VECTIBIX [Suspect]
     Active Substance: PANITUMUMAB
     Dosage: 6 MILLIGRAM/KILOGRAM 96 MG/KGC (450 MG DT))
     Route: 042
     Dates: start: 202310
  7. FLUOROURACIL [Concomitant]
     Active Substance: FLUOROURACIL
     Indication: Colon cancer stage IV
     Dosage: UNK
     Route: 065
     Dates: start: 20220203
  8. LEUCOVORIN [Concomitant]
     Active Substance: LEUCOVORIN\LEUCOVORIN CALCIUM
     Indication: Colon cancer stage IV
     Dosage: UNK
     Route: 065
     Dates: start: 20220203
  9. CAPECITABINE [Concomitant]
     Active Substance: CAPECITABINE
     Indication: Product used for unknown indication
     Dosage: 1000 MILLIGRAM/SQ. METER
     Route: 065
     Dates: start: 202301
  10. OXALIPLATIN [Concomitant]
     Active Substance: OXALIPLATIN
     Indication: Product used for unknown indication
     Dosage: UNK
     Dates: start: 20220203
  11. OXALIPLATIN [Concomitant]
     Active Substance: OXALIPLATIN
     Dosage: 130 MILLIGRAM/SQ. METER
     Route: 065
     Dates: start: 202301
  12. URSODIOL [Concomitant]
     Active Substance: URSODIOL
     Indication: Abdominal pain
     Dosage: UNK
     Route: 065
     Dates: start: 20230109
  13. URSODIOL [Concomitant]
     Active Substance: URSODIOL
     Indication: Anaemia
  14. ARGININE [Concomitant]
     Active Substance: ARGININE
     Indication: Abdominal pain
     Dosage: UNK
     Route: 065
     Dates: start: 20230109
  15. ARGININE [Concomitant]
     Active Substance: ARGININE
     Indication: Anaemia
  16. TRAMADOL [Concomitant]
     Active Substance: TRAMADOL\TRAMADOL HYDROCHLORIDE
     Indication: Abdominal pain
     Dosage: 100 MILLIGRAM, 1PC AT 2 HOURS
     Route: 065
  17. METAMIZOLE SODIUM [Concomitant]
     Active Substance: METAMIZOLE SODIUM
     Indication: Abdominal pain
     Dosage: 500 MILLIGRAM, AS NEEDED, 1PC/DAY
     Route: 065

REACTIONS (6)
  - Neuropathy peripheral [Not Recovered/Not Resolved]
  - Cholestasis [Unknown]
  - Hypocalcaemia [Unknown]
  - Cell death [Unknown]
  - Rash [Recovered/Resolved]
  - Therapy partial responder [Unknown]

NARRATIVE: CASE EVENT DATE: 20220101
